FAERS Safety Report 6103096-4 (Version None)
Quarter: 2009Q1

REPORT INFORMATION
  Report Type: 
  Country: None (occurrence: None)
  Receive Date: 20090305
  Receipt Date: 20090302
  Transmission Date: 20090719
  Serious: Yes (Hospitalization, Other)
  Sender: FDA-Public Use
  Company Number: GB-BRISTOL-MYERS SQUIBB COMPANY-14498760

PATIENT
  Age: 43 Year
  Sex: Female
  Weight: 164 kg

DRUGS (24)
  1. CARACE [Suspect]
     Route: 048
     Dates: end: 20081013
  2. IRBESARTAN [Suspect]
     Route: 048
     Dates: end: 20081013
  3. PARACETAMOL TABS [Suspect]
     Indication: MUSCLE SPASMS
     Route: 048
  4. ACOMPLIA [Suspect]
     Indication: OBESITY
     Dosage: TAKEN ON 01-JUL2007; 23JUN2007
     Route: 048
     Dates: start: 20080629, end: 20081013
  5. ACOMPLIA [Suspect]
     Indication: WEIGHT DECREASED
     Dosage: TAKEN ON 01-JUL2007; 23JUN2007
     Route: 048
     Dates: start: 20080629, end: 20081013
  6. SPIRONOLACTONE [Suspect]
     Route: 048
     Dates: end: 20081013
  7. CODEINE [Suspect]
     Indication: MUSCLE SPASMS
     Route: 048
  8. ASPIRIN [Concomitant]
     Indication: CARDIAC DISORDER
     Route: 048
  9. OMEPRAZOLE [Concomitant]
     Route: 048
  10. FUROSEMIDE [Concomitant]
     Route: 048
  11. ISOSORBIDE MONONITRATE [Concomitant]
     Dosage: 1 DOSAGE FORM = 60MG AND HALF EACH MORNING
     Route: 048
  12. ISPAGHULA [Concomitant]
     Dosage: 1 DOSAGE FORM = 1 SATCHET FORM = HUSK
     Route: 048
  13. VESICARE [Concomitant]
     Indication: BLADDER DISORDER
  14. GTN SPRAY [Concomitant]
     Indication: CARDIAC DISORDER
     Route: 060
  15. ATENOLOL [Concomitant]
     Route: 048
  16. QUININE SULFATE [Concomitant]
     Dosage: NO OF DOSE: ON
     Route: 048
  17. TRIMETHOPRIM [Concomitant]
     Indication: URINARY TRACT INFECTION
     Dosage: NUMBER OF DOSAGES: ON
     Route: 048
  18. NITRAZEPAM [Concomitant]
     Dosage: NUMBER OF DOSAGES: ON
     Route: 048
  19. OMACOR [Concomitant]
     Dosage: TAKEN 1 OM CAPS
     Route: 048
  20. LIDOCAINE [Concomitant]
     Dosage: LIDOCAINE CREAM 2%
     Route: 061
  21. ATORVASTATIN [Concomitant]
     Route: 048
  22. BISOPROLOL [Concomitant]
     Dosage: TABS
  23. DILTIAZEM HCL [Concomitant]
  24. SOLIFENACIN SUCCINATE [Concomitant]
     Dosage: TABS

REACTIONS (18)
  - ATRIAL FIBRILLATION [None]
  - BACK PAIN [None]
  - CONSTIPATION [None]
  - DEHYDRATION [None]
  - DYSPEPSIA [None]
  - FEAR OF EATING [None]
  - GASTROOESOPHAGEAL REFLUX DISEASE [None]
  - HAEMORRHOIDS [None]
  - HYPERTENSION [None]
  - NAUSEA [None]
  - OEDEMA [None]
  - OLIGURIA [None]
  - PYREXIA [None]
  - RECTAL HAEMORRHAGE [None]
  - RENAL FAILURE ACUTE [None]
  - RENAL PAIN [None]
  - VOMITING [None]
  - WEIGHT INCREASED [None]
